FAERS Safety Report 7280323-1 (Version None)
Quarter: 2011Q1

REPORT INFORMATION
  Report Type: 
  Country: None (occurrence: None)
  Receive Date: 20110208
  Receipt Date: 20110203
  Transmission Date: 20110831
  Serious: Yes (Other)
  Sender: FDA-Public Use
  Company Number: US-PFIZER INC-2010091963

PATIENT
  Sex: Female

DRUGS (4)
  1. CHANTIX [Suspect]
     Dosage: 1 MG, TWO WEEK EACH TIME
     Route: 048
     Dates: start: 20090520, end: 20090605
  2. CHANTIX [Suspect]
     Indication: SMOKING CESSATION THERAPY
     Dosage: 0.5 MG, TWO WEEK EACH TIME
     Route: 048
     Dates: start: 20081014, end: 20081030
  3. AMBIEN [Concomitant]
     Indication: SLEEP APNOEA SYNDROME
     Dosage: UNK
     Dates: start: 20070101
  4. METFORMIN [Concomitant]
     Indication: DIABETES MELLITUS
     Dosage: UNK
     Dates: start: 20070101

REACTIONS (12)
  - SUICIDE ATTEMPT [None]
  - BIPOLAR DISORDER [None]
  - AGGRESSION [None]
  - ABDOMINAL DISCOMFORT [None]
  - VOMITING [None]
  - ABNORMAL DREAMS [None]
  - DEPRESSION [None]
  - ANXIETY [None]
  - NAUSEA [None]
  - INSOMNIA [None]
  - INTENTIONAL OVERDOSE [None]
  - AFFECTIVE DISORDER [None]
